FAERS Safety Report 5600766-9 (Version None)
Quarter: 2008Q1

REPORT INFORMATION
  Report Type: 
  Country: None (occurrence: None)
  Receive Date: 20080123
  Receipt Date: 20080114
  Transmission Date: 20080703
  Serious: Yes (Hospitalization, Disabling, Other)
  Sender: FDA-Public Use
  Company Number: US-PFIZER INC-2007077813

PATIENT
  Sex: Female

DRUGS (1)
  1. BEXTRA [Suspect]
     Indication: BACK INJURY
     Route: 048

REACTIONS (6)
  - ANXIETY [None]
  - CEREBROVASCULAR ACCIDENT [None]
  - COMPLEX REGIONAL PAIN SYNDROME [None]
  - RENAL FAILURE [None]
  - RHABDOMYOLYSIS [None]
  - VISUAL DISTURBANCE [None]
